FAERS Safety Report 6836207-3 (Version None)
Quarter: 2010Q3

REPORT INFORMATION
  Report Type: 
  Country: None (occurrence: None)
  Receive Date: 20100712
  Receipt Date: 20100712
  Transmission Date: 20110219
  Serious: No
  Sender: FDA-Public Use
  Company Number: None

PATIENT
  Sex: Female
  Weight: 18 kg

DRUGS (6)
  1. PEG-L ASPARAGINASE (PEGASPARGASE, ONCOSPAR) [Suspect]
     Dosage: 3700 IU
     Dates: end: 20100707
  2. VINCRISTINE SULFATE [Suspect]
     Dosage: 3.3 MG
     Dates: end: 20100707
  3. CYCLOPHOSPHAMIDE [Suspect]
     Dosage: 1460 MG
     Dates: end: 20100625
  4. CYTARABINE [Suspect]
     Dosage: 876 MG
     Dates: end: 20100705
  5. MERCAPTOPURINE [Suspect]
     Dosage: 1300 MG
     Dates: end: 20100708
  6. METHOTREXATE [Suspect]
     Dosage: 48 MG
     Dates: end: 20100614

REACTIONS (1)
  - HYPERGLYCAEMIA [None]
